FAERS Safety Report 24105274 (Version 2)
Quarter: 2024Q3

REPORT INFORMATION
  Report Type: Report from Study
  Country: US (occurrence: US)
  Receive Date: 20240717
  Receipt Date: 20240823
  Transmission Date: 20241017
  Serious: Yes (Hospitalization)
  Sender: ROCHE
  Company Number: US-ROCHE-3194678

PATIENT
  Age: 32 Year
  Sex: Male
  Weight: 70.31 kg

DRUGS (21)
  1. RITUXAN [Suspect]
     Active Substance: RITUXIMAB
     Indication: Nephritic syndrome
     Route: 042
     Dates: start: 20220927
  2. GAZYVA [Suspect]
     Active Substance: OBINUTUZUMAB
     Indication: Glomerulonephritis minimal lesion
     Route: 042
  3. METFORMIN [Concomitant]
     Active Substance: METFORMIN HYDROCHLORIDE
     Indication: Glucose tolerance impaired
     Route: 048
     Dates: start: 202103
  4. BRIMONIDINE [Concomitant]
     Active Substance: BRIMONIDINE TARTRATE
     Indication: Intraocular pressure increased
     Dosage: STARTED ABOUT 3 WEEKS TO 1 MONTH AGO 1 DROP IN EACH EYE 2 TIMES PER DAY ;ONGOING: YES
     Route: 047
     Dates: start: 202209
  5. PANTOPRAZOLE [Concomitant]
     Active Substance: PANTOPRAZOLE
     Indication: Abdominal pain upper
     Dosage: YES
     Route: 048
     Dates: start: 202105
  6. PANTOPRAZOLE [Concomitant]
     Active Substance: PANTOPRAZOLE
     Indication: Nausea
  7. ATORVASTATIN [Concomitant]
     Active Substance: ATORVASTATIN
     Indication: Blood cholesterol increased
     Dosage: STARTED WITHIN A FEW MONTHS OF MAR-2021 ;ONGOING: YES
     Route: 048
     Dates: start: 2021
  8. POTASSIUM CHLORATE [Concomitant]
     Active Substance: POTASSIUM CHLORATE
     Indication: Blood potassium decreased
     Dosage: YES
     Route: 048
     Dates: start: 202103
  9. PREDNISONE [Concomitant]
     Active Substance: PREDNISONE
     Dosage: ON A TAPERING SCHEDULE STARTED AT 80 MG ;ONGOING: YES
     Route: 048
  10. BUMETANIDE [Concomitant]
     Active Substance: BUMETANIDE
     Indication: Oedema
     Dosage: YES
     Route: 048
     Dates: start: 202103
  11. LISINOPRIL [Concomitant]
     Active Substance: LISINOPRIL
     Indication: Hypertension
     Dosage: YES
     Route: 048
     Dates: start: 202104
  12. BACTRIM [Concomitant]
     Active Substance: SULFAMETHOXAZOLE\TRIMETHOPRIM
     Route: 048
     Dates: start: 202103
  13. ATORVASTATIN [Concomitant]
     Active Substance: ATORVASTATIN
  14. BUMETANIDE [Concomitant]
     Active Substance: BUMETANIDE
  15. KLOR-CON [Concomitant]
     Active Substance: POTASSIUM CHLORIDE
  16. LISINOPRIL [Concomitant]
     Active Substance: LISINOPRIL
     Route: 048
     Dates: start: 20240802
  17. METFORMIN HYDROCHLORIDE [Concomitant]
     Active Substance: METFORMIN HYDROCHLORIDE
  18. PANTOPRAZOLE [Concomitant]
     Active Substance: PANTOPRAZOLE
  19. SULFAMETHOXAZOLE [Concomitant]
     Active Substance: SULFAMETHOXAZOLE
  20. TACROLIMUS [Concomitant]
     Active Substance: TACROLIMUS
  21. ACETAMINOPHEN [Concomitant]
     Active Substance: ACETAMINOPHEN

REACTIONS (7)
  - Off label use [Unknown]
  - Tremor [Unknown]
  - Nausea [Unknown]
  - Pneumonia fungal [Unknown]
  - Insomnia [Unknown]
  - Oedema [Unknown]
  - Arthralgia [Unknown]

NARRATIVE: CASE EVENT DATE: 20220927
